FAERS Safety Report 9092105 (Version 1)
Quarter: 2013Q1

REPORT INFORMATION
  Report Type: Report from Study
  Country: US (occurrence: US)
  Receive Date: 20130131
  Receipt Date: 20130131
  Transmission Date: 20140127
  Serious: No
  Sender: FDA-Public Use
  Company Number: US-ABBOTT-12P-163-1022369-00

PATIENT
  Age: 39 Year
  Sex: Male

DRUGS (3)
  1. HUMIRA [Suspect]
     Indication: PSORIASIS
     Route: 058
     Dates: start: 20120605
  2. HUMIRA [Suspect]
     Route: 058
     Dates: start: 20121121
  3. TRIMILICON ACIDINE [Concomitant]
     Indication: PRODUCT USED FOR UNKNOWN INDICATION
     Dosage: APPLY TWICE DAILY AS NEEDED
     Route: 061

REACTIONS (2)
  - Incorrect dose administered [Not Recovered/Not Resolved]
  - Drug ineffective [Unknown]
